FAERS Safety Report 7866912-1 (Version None)
Quarter: 2011Q4

REPORT INFORMATION
  Report Type: 
  Country: None (occurrence: None)
  Receive Date: 20111028
  Receipt Date: 20111018
  Transmission Date: 20120403
  Serious: Yes (Death, Other)
  Sender: FDA-Public Use
  Company Number: GB-GENZYME-CLOF-1001734

PATIENT
  Age: 11 Year
  Sex: Female
  Weight: 35 kg

DRUGS (29)
  1. EVOLTRA [Suspect]
     Indication: ACUTE LYMPHOCYTIC LEUKAEMIA
     Dosage: 48 MG, QD
     Route: 042
     Dates: start: 20110617, end: 20110621
  2. DEXAMETHASONE [Suspect]
     Dosage: 6 MG, BID
     Route: 048
     Dates: start: 20110526, end: 20110608
  3. DEXAMETHASONE [Suspect]
     Dosage: 6 MG, BID
     Route: 048
     Dates: start: 20110617, end: 20110623
  4. ALLOPURINOL [Concomitant]
     Indication: TUMOUR LYSIS SYNDROME
  5. COTRIM [Concomitant]
     Indication: PNEUMOCYSTIS JIROVECI PNEUMONIA
     Dosage: 480 MG, BID
     Route: 048
     Dates: start: 20110521
  6. LEVOMEPROMAZINE [Concomitant]
     Indication: VOMITING
  7. CYTARABINE [Suspect]
     Indication: ACUTE LYMPHOCYTIC LEUKAEMIA
     Dosage: 30 MG, 1X/W
     Route: 037
     Dates: start: 20110511, end: 20110608
  8. METHOTREXATE [Suspect]
     Indication: ACUTE LYMPHOCYTIC LEUKAEMIA
     Dosage: 12 MG, 1X/W
     Route: 037
     Dates: start: 20110511, end: 20110622
  9. PIPERACILLIN W [Concomitant]
     Indication: GASTROSTOMY TUBE INSERTION
     Dosage: 3190 MG, QID
     Route: 042
     Dates: start: 20110616, end: 20110619
  10. ACETAMINOPHEN [Concomitant]
     Indication: PYREXIA
  11. ETOPOSIDE [Suspect]
     Indication: ACUTE LYMPHOCYTIC LEUKAEMIA
     Dosage: 120 MG, QD
     Route: 042
     Dates: start: 20110512, end: 20110516
  12. AMBISOME [Concomitant]
     Indication: ANTIFUNGAL PROPHYLAXIS
     Dosage: 37 MG, 3X/W
     Route: 042
     Dates: start: 20110511
  13. ACETAMINOPHEN [Concomitant]
     Indication: PAIN
     Dosage: 750 MG, QID
     Route: 048
     Dates: start: 20110518
  14. PEG-ASPARAGINASE [Suspect]
     Indication: ACUTE LYMPHOCYTIC LEUKAEMIA
     Dosage: 1200 IU, Q2W
     Route: 030
     Dates: start: 20110512, end: 20110526
  15. ALLOPURINOL [Concomitant]
     Indication: PROPHYLAXIS
     Dosage: 100 MG, TID
     Route: 048
     Dates: start: 20110616, end: 20110620
  16. ONDANSETRON [Concomitant]
     Indication: VOMITING
  17. HYDROCORTISONE [Suspect]
     Indication: ACUTE LYMPHOCYTIC LEUKAEMIA
     Dosage: 12.5 MG, 1X/W
     Route: 037
     Dates: start: 20110511, end: 20110608
  18. VINCRISTINE [Suspect]
     Indication: ACUTE LYMPHOCYTIC LEUKAEMIA
     Dosage: 1.7 MG, 1X/W
     Route: 042
     Dates: start: 20110512, end: 20110602
  19. CIPROFLOXACIN [Concomitant]
     Indication: INFECTION PROPHYLAXIS
     Dosage: 185 MG, BID
     Route: 048
     Dates: start: 20110516
  20. LEVOMEPROMAZINE [Concomitant]
     Indication: NAUSEA
     Dosage: 3.5 MG, BID
     Route: 042
     Dates: start: 20110618, end: 20110619
  21. OMEPRAZOLE [Concomitant]
     Indication: PRODUCT USED FOR UNKNOWN INDICATION
     Dosage: 10 MG, QD
     Route: 048
     Dates: start: 20110516
  22. ONDANSETRON [Concomitant]
     Indication: NAUSEA
     Dosage: 6 MG, TID
     Route: 048
     Dates: start: 20110616, end: 20110623
  23. CYCLOPHOSPHAMIDE [Suspect]
     Indication: ACUTE LYMPHOCYTIC LEUKAEMIA
     Dosage: 360 MG, QD
     Route: 042
     Dates: start: 20110617, end: 20110621
  24. DEXAMETHASONE [Suspect]
     Indication: ACUTE LYMPHOCYTIC LEUKAEMIA
     Dosage: 6 MG, BID
     Route: 048
     Dates: start: 20110512, end: 20110518
  25. ETOPOSIDE [Suspect]
     Dosage: 120 MG, QD
     Route: 042
     Dates: start: 20110617, end: 20110621
  26. PENICILLIN V [Concomitant]
     Indication: INFECTION PROPHYLAXIS
     Dosage: 250 MG, BID
     Route: 048
  27. DEXAMETHASONE [Suspect]
     Dosage: 6 MG, BID
     Route: 048
     Dates: start: 20110701, end: 20110707
  28. COTRIM [Concomitant]
     Indication: PROPHYLAXIS
  29. METRONIDAZOLE [Concomitant]
     Indication: GASTROSTOMY TUBE INSERTION
     Dosage: 250 MG, TID
     Route: 042
     Dates: start: 20110616, end: 20110619

REACTIONS (30)
  - RECTAL HAEMORRHAGE [None]
  - ERYTHEMA [None]
  - EXTRASYSTOLES [None]
  - PAIN IN EXTREMITY [None]
  - HYPOTENSION [None]
  - PAIN [None]
  - SKIN HYPERPIGMENTATION [None]
  - RASH [None]
  - CHEST PAIN [None]
  - MULTI-ORGAN FAILURE [None]
  - ATRIAL FIBRILLATION [None]
  - HEPATIC FUNCTION ABNORMAL [None]
  - RESPIRATORY FAILURE [None]
  - HEART RATE INCREASED [None]
  - ANURIA [None]
  - HEART RATE ABNORMAL [None]
  - ARRHYTHMIA [None]
  - ACUTE LYMPHOCYTIC LEUKAEMIA [None]
  - MUSCULOSKELETAL PAIN [None]
  - CAECITIS [None]
  - ELECTROCARDIOGRAM P WAVE ABNORMAL [None]
  - ORAL PAIN [None]
  - HYPERSENSITIVITY [None]
  - ABDOMINAL PAIN [None]
  - MUCOSAL INFLAMMATION [None]
  - RASH ERYTHEMATOUS [None]
  - COAGULOPATHY [None]
  - RENAL FAILURE ACUTE [None]
  - DYSPEPSIA [None]
  - HEADACHE [None]
